FAERS Safety Report 19924085 (Version 2)
Quarter: 2021Q4

REPORT INFORMATION
  Report Type: Spontaneous
  Country: US (occurrence: US)
  Receive Date: 20211006
  Receipt Date: 20211012
  Transmission Date: 20220303
  Serious: Yes (Other)
  Sender: FDA-Public Use
  Company Number: US-PFIZER INC-202101120298

PATIENT
  Age: 64 Year
  Sex: Female

DRUGS (2)
  1. XELJANZ XR [Suspect]
     Active Substance: TOFACITINIB CITRATE
     Indication: Rheumatoid arthritis
     Dosage: 11 MG, 1X A DAY
     Route: 048
     Dates: start: 202108, end: 202109
  2. ASPIRIN [Concomitant]
     Active Substance: ASPIRIN
     Indication: Coagulopathy
     Dosage: UNK

REACTIONS (9)
  - Neutropenia [Unknown]
  - Pain [Unknown]
  - Musculoskeletal pain [Unknown]
  - Chest pain [Unknown]
  - Arthralgia [Unknown]
  - Contusion [Unknown]
  - Gastrointestinal disorder [Recovering/Resolving]
  - Anaemia [Unknown]
  - Stomatitis [Unknown]
